FAERS Safety Report 6780183-9 (Version None)
Quarter: 2010Q2

REPORT INFORMATION
  Report Type: 
  Country: None (occurrence: None)
  Receive Date: 20100618
  Receipt Date: 20100609
  Transmission Date: 20101027
  Serious: Yes (Death)
  Sender: FDA-Public Use
  Company Number: AT-GENZYME-CLOF-1000893

PATIENT
  Sex: Female
  Weight: 50 kg

DRUGS (12)
  1. EVOLTRA [Suspect]
     Indication: ACUTE MYELOID LEUKAEMIA
     Dosage: 30 MG/M2, QDX5
     Route: 042
     Dates: start: 20100125, end: 20100129
  2. TROPISETRON [Concomitant]
     Indication: PROPHYLAXIS
     Dosage: UNK UNK, UNK
     Route: 065
     Dates: start: 20100125, end: 20100129
  3. DAUNORUBICIN HCL [Concomitant]
     Indication: ACUTE MYELOID LEUKAEMIA
     Dosage: UNK
     Dates: start: 20091127, end: 20091203
  4. CYTARABINE [Concomitant]
     Indication: ACUTE MYELOID LEUKAEMIA
     Dosage: UNK
     Dates: start: 20091127, end: 20091203
  5. DULCOLAX [Concomitant]
     Indication: CONSTIPATION
     Dosage: UNK
  6. MOTILIUM [Concomitant]
     Indication: PROPHYLAXIS OF NAUSEA AND VOMITING
     Dosage: 10 MG, QD
  7. MOTILIUM [Concomitant]
     Dosage: 10 MG, BID
  8. DIFLUCAN [Concomitant]
     Indication: DERMATOMYOSITIS
  9. TAZONAM [Concomitant]
     Indication: PYREXIA
     Dosage: 5 G, UNK
  10. CEFUROXIME [Concomitant]
     Indication: PYREXIA
  11. MITOXANTRONE [Concomitant]
     Indication: ACUTE MYELOID LEUKAEMIA
     Dosage: UNK
     Dates: start: 20091218, end: 20091222
  12. ARA-C [Concomitant]
     Indication: ACUTE MYELOID LEUKAEMIA
     Dosage: UNK
     Dates: start: 20091218, end: 20091222

REACTIONS (1)
  - ACUTE MYELOID LEUKAEMIA [None]
